FAERS Safety Report 8401523-0 (Version None)
Quarter: 2012Q2

REPORT INFORMATION
  Report Type: 
  Country: None (occurrence: None)
  Receive Date: 20120525
  Receipt Date: 20120511
  Transmission Date: 20120825
  Serious: Yes (Other)
  Sender: FDA-Public Use
  Company Number: AUR-APL-2012-02256

PATIENT
  Age: 33 Year
  Sex: Male

DRUGS (12)
  1. CLOZAPINE [Suspect]
     Indication: PRODUCT USED FOR UNKNOWN INDICATION
     Dosage: ORAL
     Route: 048
     Dates: start: 20111025, end: 20120307
  2. BECLOMETHASONE DIPROPIONATE [Concomitant]
  3. RAMIPRIL [Suspect]
     Indication: HYPERTENSION
     Dosage: (2.5 MG, 1 D),(5 MG, 1 D) (10 MG, 1 D)
     Dates: start: 20110822
  4. RAMIPRIL [Suspect]
     Indication: HYPERTENSION
     Dosage: (2.5 MG, 1 D),(5 MG, 1 D) (10 MG, 1 D)
     Dates: start: 20120306, end: 20120309
  5. RAMIPRIL [Suspect]
     Indication: HYPERTENSION
     Dosage: (2.5 MG, 1 D),(5 MG, 1 D) (10 MG, 1 D)
     Dates: start: 20120302
  6. OMEPRAZOLE [Concomitant]
  7. PEGINTERFERON ALFA-2A [Suspect]
     Indication: HEPATITIS C
     Dosage: (180 MCG, 1 WK), SUBCUTANEOUS
     Route: 058
     Dates: start: 20110516
  8. VENLAFAXINE HCL [Concomitant]
  9. CALCICHEW D3 (LEKOVIT CA) [Concomitant]
  10. RIBAVIRIN [Suspect]
     Indication: HEPATITIS C
     Dosage: (1200 MG), ORAL 200 MG (100 MG, 2 IN 1 D), ORAL
     Route: 048
     Dates: start: 20120319, end: 20120401
  11. RIBAVIRIN [Suspect]
     Indication: HEPATITIS C
     Dosage: (1200 MG), ORAL 200 MG (100 MG, 2 IN 1 D), ORAL
     Route: 048
     Dates: start: 20110516
  12. MOVICOL (MOVICOL) [Concomitant]

REACTIONS (2)
  - NEUTROPENIA [None]
  - WHITE BLOOD CELL COUNT DECREASED [None]
